FAERS Safety Report 12452852 (Version 1)
Quarter: 2016Q2

REPORT INFORMATION
  Report Type: Spontaneous
  Country: US (occurrence: US)
  Receive Date: 20160609
  Receipt Date: 20160609
  Transmission Date: 20160815
  Serious: Yes (Other)
  Sender: FDA-Public Use
  Company Number: US-TEVA-663358USA

PATIENT
  Age: 56 Year
  Sex: Female
  Weight: 76.27 kg

DRUGS (1)
  1. COPAXONE [Suspect]
     Active Substance: GLATIRAMER ACETATE
     Indication: MULTIPLE SCLEROSIS
     Route: 058

REACTIONS (6)
  - Therapy change [Unknown]
  - Weight decreased [Unknown]
  - Urinary retention [Unknown]
  - Injection site atrophy [Unknown]
  - Bladder dilatation [Unknown]
  - Abdominal distension [Unknown]
